FAERS Safety Report 5477745-8 (Version None)
Quarter: 2007Q3

REPORT INFORMATION
  Report Type: 
  Country: None (occurrence: None)
  Receive Date: 20070831
  Receipt Date: 20070801
  Transmission Date: 20080115
  Serious: No
  Sender: FDA-Public Use
  Company Number: PHEH2007US09484

PATIENT
  Age: 70 Year
  Sex: Male

DRUGS (2)
  1. EXJADE [Suspect]
     Indication: IRON OVERLOAD
     Dosage: 1500 , QD, ORAL
     Route: 048
     Dates: start: 20070621
  2. REVLIMID [Concomitant]

REACTIONS (2)
  - PRURITUS [None]
  - RASH [None]
